FAERS Safety Report 6602210-1 (Version None)
Quarter: 2010Q1

REPORT INFORMATION
  Report Type: 
  Country: None (occurrence: None)
  Receive Date: 20100225
  Receipt Date: 20100215
  Transmission Date: 20100710
  Serious: Yes (Other)
  Sender: FDA-Public Use
  Company Number: DE-PFIZER INC-2010019381

PATIENT
  Age: 73 Year
  Sex: Female

DRUGS (7)
  1. CELEBREX [Suspect]
     Indication: RHEUMATOID ARTHRITIS
     Dosage: 200 MG, 1X/DAY
     Route: 048
  2. PREDNISOLONE [Interacting]
     Indication: RHEUMATOID ARTHRITIS
     Dosage: UNK
     Route: 048
  3. METEX [Interacting]
     Indication: RHEUMATOID ARTHRITIS
     Dosage: UNK
     Route: 048
     Dates: end: 20091201
  4. RAMIPRIL/HYDROCHLOROTHIAZIDE [Concomitant]
     Indication: HYPERTENSION
     Dosage: 1 DF (5 MG RAMIPRIL, 25 MG HYDROCHLOROTHIAZIDE), AS NEEDED
     Route: 048
  5. OBSIDAN [Concomitant]
     Indication: HYPERTENSION
     Dosage: 1 DF, 2X/DAY
     Route: 048
  6. ACTONEL PLUS CALCIUM D [Concomitant]
     Indication: OSTEOPOROSIS
     Dosage: UNK
     Route: 048
  7. PANTOZOL [Concomitant]
     Indication: PROPHYLAXIS AGAINST GASTROINTESTINAL ULCER
     Dosage: UNK
     Route: 048

REACTIONS (3)
  - COUGH [None]
  - DRUG INTERACTION [None]
  - HELICOBACTER INFECTION [None]
